FAERS Safety Report 14092084 (Version 1)
Quarter: 2017Q4

REPORT INFORMATION
  Report Type: Spontaneous
  Country: JP (occurrence: JP)
  Receive Date: 20171016
  Receipt Date: 20171016
  Transmission Date: 20180321
  Serious: Yes (Death, Other)
  Sender: FDA-Public Use
  Company Number: JP-BRISTOL-MYERS SQUIBB COMPANY-12007126

PATIENT
  Age: 27 Year
  Sex: Male

DRUGS (4)
  1. ETOPOSIDE. [Suspect]
     Active Substance: ETOPOSIDE
     Indication: OSTEOSARCOMA
     Dosage: 100 MG, QD
     Route: 042
     Dates: start: 19980911, end: 19980913
  2. PARAPLATIN [Suspect]
     Active Substance: CARBOPLATIN
     Indication: OSTEOSARCOMA
     Dosage: 600 MG, UNK
     Route: 042
     Dates: start: 19980913, end: 19980913
  3. IFOSFAMIDE. [Suspect]
     Active Substance: IFOSFAMIDE
     Indication: OSTEOSARCOMA
     Dosage: 2 G, QD
     Route: 042
     Dates: start: 19980911, end: 19980913
  4. MESNA. [Concomitant]
     Active Substance: MESNA
     Indication: PRODUCT USED FOR UNKNOWN INDICATION
     Dosage: 1.6 G, UNK
     Route: 042
     Dates: start: 19980911, end: 19980913

REACTIONS (8)
  - Bone marrow failure [Fatal]
  - Obstructive airways disorder [Fatal]
  - Stomatitis [Unknown]
  - Renal impairment [Fatal]
  - Laryngitis [Fatal]
  - Cardiac arrest [Fatal]
  - Platelet count decreased [Fatal]
  - White blood cell count decreased [Fatal]

NARRATIVE: CASE EVENT DATE: 19980921
